FAERS Safety Report 19791897 (Version 1)
Quarter: 2021Q3

REPORT INFORMATION
  Report Type: Spontaneous
  Country: US (occurrence: US)
  Receive Date: 20210906
  Receipt Date: 20210906
  Transmission Date: 20211014
  Serious: Yes (Other)
  Sender: FDA-Public Use
  Company Number: US-PERRIGO-21US014717

PATIENT
  Age: 60 Year
  Sex: Male

DRUGS (2)
  1. RANITIDINE HYDROCHLORIDE (852) [Suspect]
     Active Substance: RANITIDINE HYDROCHLORIDE
     Indication: DYSPEPSIA
     Dosage: DOSE FREQUENCY: OTHER ? 2?3X/DAY
     Route: 048
     Dates: start: 198407, end: 202005
  2. RANITIDINE HYDROCHLORIDE (852) [Suspect]
     Active Substance: RANITIDINE HYDROCHLORIDE
     Indication: DYSPEPSIA

REACTIONS (5)
  - Colorectal cancer [Unknown]
  - Gastric cancer [Unknown]
  - Gastrointestinal carcinoma [Unknown]
  - Oesophageal carcinoma [Unknown]
  - Renal cancer [Unknown]

NARRATIVE: CASE EVENT DATE: 20120909
